FAERS Safety Report 24102115 (Version 5)
Quarter: 2025Q3

REPORT INFORMATION
  Report Type: Report from Study
  Country: GB (occurrence: GB)
  Receive Date: 20240717
  Receipt Date: 20250726
  Transmission Date: 20251021
  Serious: Yes (Hospitalization, Other)
  Sender: SANDOZ
  Company Number: GB-002147023-NVSC2022GB152279

PATIENT
  Sex: Male

DRUGS (9)
  1. OMNITROPE [Suspect]
     Active Substance: SOMATROPIN
     Dosage: 0.3 MG, QD
     Route: 058
  2. OMNITROPE [Suspect]
     Active Substance: SOMATROPIN
     Dosage: 0.3 MG, QD, CARTRIDGES
     Route: 058
  3. OMNITROPE [Suspect]
     Active Substance: SOMATROPIN
     Indication: Cerebrovascular accident
     Dosage: 0.3 MG, QD
     Route: 058
     Dates: start: 2020
  4. OMNITROPE [Suspect]
     Active Substance: SOMATROPIN
     Indication: Growth hormone deficiency
     Dosage: 0.4 MG, QD (FORMULATION CARTRIDGE)
     Route: 058
     Dates: start: 2020
  5. CLOPIDOGREL [Concomitant]
     Active Substance: CLOPIDOGREL BISULFATE
     Indication: Product used for unknown indication
     Route: 065
  6. HYDROCORTISONE [Concomitant]
     Active Substance: HYDROCORTISONE
     Indication: Product used for unknown indication
     Route: 065
  7. LANSOPRAZOLE [Concomitant]
     Active Substance: LANSOPRAZOLE
     Indication: Product used for unknown indication
     Route: 065
  8. LEVOTHYROXINE [Concomitant]
     Active Substance: LEVOTHYROXINE
     Indication: Product used for unknown indication
     Route: 065
  9. PENICILLIN [Concomitant]
     Active Substance: PENICILLIN
     Indication: Product used for unknown indication
     Route: 065

REACTIONS (18)
  - Gastric ulcer haemorrhage [Unknown]
  - Immune system disorder [Unknown]
  - Arrhythmia [Unknown]
  - Depressed mood [Unknown]
  - Insomnia [Unknown]
  - Malaise [Unknown]
  - Nervousness [Unknown]
  - Product availability issue [Unknown]
  - Product use issue [Unknown]
  - Product dose omission issue [Unknown]
  - Incorrect dose administered [Unknown]
  - Product prescribing issue [Unknown]
  - Product use in unapproved indication [Unknown]
  - Device use issue [Unknown]
  - Product packaging quantity issue [Unknown]
  - Product storage error [Unknown]
  - Poor quality product administered [Unknown]
  - Drug ineffective [Unknown]
